FAERS Safety Report 4484890-2 (Version None)
Quarter: 2004Q3

REPORT INFORMATION
  Report Type: 
  Country: None (occurrence: None)
  Receive Date: 20040921
  Receipt Date: 20030903
  Transmission Date: 20050211
  Serious: Yes (Other)
  Sender: FDA-Public Use
  Company Number: 163-20785-03090176

PATIENT
  Age: 81 Year
  Sex: Male

DRUGS (1)
  1. THALOMID [Suspect]
     Indication: PROSTATE CANCER
     Dosage: QHS, ORAL
     Route: 048
     Dates: start: 20030710, end: 20030713

REACTIONS (4)
  - JOINT SWELLING [None]
  - NAUSEA [None]
  - RASH [None]
  - THROMBOSIS [None]
